FAERS Safety Report 9988749 (Version 1)
Quarter: 2013Q4

REPORT INFORMATION
  Report Type: Spontaneous
  Country: CO (occurrence: None)
  Receive Date: 20131008
  Receipt Date: 20131008
  Transmission Date: 20140711
  Serious: Yes (Other)
  Sender: FDA-Public Use
  Company Number: DSU-2013-04736

PATIENT
  Age: 65 Year
  Sex: Female

DRUGS (3)
  1. OLMETEC [Suspect]
     Indication: HYPERTENSION
     Route: 048
     Dates: start: 2011
  2. SODIUM ALGINATE/SODIUM BICARBONATE (SODIUM BICARBONATE, SODIUM ALGINATE)(SODIUM BICARBONATE, SODIUM ALGINATE) [Concomitant]
  3. RANITIDINE (RANITIDINE) (RANITIDINE) [Concomitant]

REACTIONS (8)
  - Fluid retention [None]
  - Local swelling [None]
  - Fall [None]
  - Spinal disorder [None]
  - Headache [None]
  - Knee arthroplasty [None]
  - Extra dose administered [None]
  - Drug administration error [None]
